FAERS Safety Report 9824199 (Version 1)
Quarter: 2014Q1

REPORT INFORMATION
  Report Type: Spontaneous
  Country: US (occurrence: US)
  Receive Date: 20140116
  Receipt Date: 20140116
  Transmission Date: 20141002
  Serious: No
  Sender: FDA-Public Use
  Company Number: -SAAVPROD-MOZO-1000823

PATIENT
  Sex: 0

DRUGS (1)
  1. PLERIXAFOR [Suspect]
     Indication: HAEMATOPOIETIC STEM CELL MOBILISATION
     Dosage: 4 DF, UNK
     Route: 065

REACTIONS (1)
  - Therapeutic response decreased [Unknown]
